FAERS Safety Report 21383617 (Version 1)
Quarter: 2022Q3

REPORT INFORMATION
  Report Type: Spontaneous
  Country: US (occurrence: US)
  Receive Date: 20220927
  Receipt Date: 20220927
  Transmission Date: 20221027
  Serious: No
  Sender: FDA-Public Use
  Company Number: US-TEVA-2022-US-2073059

PATIENT
  Age: 78 Year
  Sex: Female
  Weight: 72.5 kg

DRUGS (1)
  1. BUTALBITAL [Suspect]
     Active Substance: BUTALBITAL
     Indication: Headache
     Route: 065
     Dates: end: 202207

REACTIONS (1)
  - Therapeutic product effect incomplete [Unknown]
